FAERS Safety Report 15743179 (Version 3)
Quarter: 2018Q4

REPORT INFORMATION
  Report Type: Spontaneous
  Country: JP (occurrence: JP)
  Receive Date: 20181220
  Receipt Date: 20181227
  Transmission Date: 20190205
  Serious: Yes (Hospitalization, Other)
  Sender: FDA-Public Use
  Company Number: JP-ROCHE-2232610

PATIENT
  Age: 39 Year
  Sex: Male

DRUGS (6)
  1. FLUOROURACIL. [Concomitant]
     Active Substance: FLUOROURACIL
     Indication: PSEUDOMYXOMA PERITONEI
     Route: 040
  2. LEVOFOLINATE DE CALCIUM [Concomitant]
     Active Substance: LEVOLEUCOVORIN CALCIUM
     Indication: PSEUDOMYXOMA PERITONEI
     Route: 041
  3. IRINOTECAN HYDROCHLORIDE TRIHYDRATE [Concomitant]
     Active Substance: IRINOTECAN HYDROCHLORIDE
     Indication: PSEUDOMYXOMA PERITONEI
     Route: 041
  4. GIMERACIL/OTERACIL POTASSIUM/TEGAFUR [Concomitant]
     Active Substance: GIMERACIL\OTERACIL\TEGAFUR
     Indication: PSEUDOMYXOMA PERITONEI
     Route: 048
  5. AVASTIN [Suspect]
     Active Substance: BEVACIZUMAB
     Indication: PSEUDOMYXOMA PERITONEI
     Route: 041
  6. FLUOROURACIL. [Concomitant]
     Active Substance: FLUOROURACIL
     Route: 041

REACTIONS (5)
  - Off label use [Unknown]
  - Pulmonary tumour thrombotic microangiopathy [Unknown]
  - Subileus [Unknown]
  - Disseminated intravascular coagulation [Unknown]
  - Intentional product use issue [Unknown]
